FAERS Safety Report 16403548 (Version 1)
Quarter: 2019Q2

REPORT INFORMATION
  Report Type: Spontaneous
  Country: GB (occurrence: GB)
  Receive Date: 20190607
  Receipt Date: 20190607
  Transmission Date: 20190711
  Serious: Yes (Disabling, Congenital Anomaly)
  Sender: FDA-Public Use
  Company Number: GB-AUROBINDO-07-AUR-00543

PATIENT

DRUGS (3)
  1. CITALOPRAM FILM-COATED TABLETS 20MG [Suspect]
     Active Substance: CITALOPRAM HYDROBROMIDE
     Indication: ANXIETY
     Dosage: 20 MILLIGRAM, UNK
     Route: 050
     Dates: start: 200208
  2. ST JOHN^S WORT [Concomitant]
     Active Substance: ST. JOHN^S WORT
     Indication: DEPRESSION
     Dosage: 1 DOSAGE FORM, UNK
     Route: 048
     Dates: start: 200206, end: 200208
  3. CITALOPRAM FILM-COATED TABLETS 20MG [Suspect]
     Active Substance: CITALOPRAM HYDROBROMIDE
     Indication: DEPRESSION

REACTIONS (2)
  - Paternal exposure timing unspecified [Unknown]
  - Acquired epileptic aphasia [Not Recovered/Not Resolved]
